APPROVED DRUG PRODUCT: TYKERB
Active Ingredient: LAPATINIB DITOSYLATE
Strength: EQ 250MG BASE
Dosage Form/Route: TABLET;ORAL
Application: N022059 | Product #001 | TE Code: AB
Applicant: NOVARTIS PHARMACEUTICALS CORP
Approved: Mar 13, 2007 | RLD: Yes | RS: Yes | Type: RX

PATENTS:
Patent 8821927 | Expires: Sep 18, 2029